FAERS Safety Report 9490564 (Version 3)
Quarter: 2013Q4

REPORT INFORMATION
  Report Type: Spontaneous
  Country: GB (occurrence: None)
  Receive Date: 20130826
  Receipt Date: 20131119
  Transmission Date: 20140711
  Serious: Yes (Other)
  Sender: FDA-Public Use
  Company Number: AUR-APL-2013-06938

PATIENT
  Age: 38 Year
  Sex: Male

DRUGS (3)
  1. RIBAVIRIN (RIBAVIRIN) [Suspect]
     Indication: HEPATITIS C
     Route: 048
     Dates: start: 20121029
  2. INTERFERON ALFA-2A [Suspect]
     Indication: HEPATITIS C
     Route: 058
     Dates: start: 20121029
  3. INCIVO [Suspect]
     Indication: HEPATITIS C
     Dosage: 2250 MG (750 MG 1 IN 8  HOUR)
     Route: 048
     Dates: start: 20121029

REACTIONS (4)
  - Hypothyroidism [None]
  - Fatigue [None]
  - Anaemia [None]
  - Rash generalised [None]
